FAERS Safety Report 5575876-5 (Version None)
Quarter: 2007Q4

REPORT INFORMATION
  Report Type: 
  Country: None (occurrence: None)
  Receive Date: 20071130
  Receipt Date: 20070730
  Transmission Date: 20080405
  Serious: No
  Sender: FDA-Public Use
  Company Number: US200707007111

PATIENT
  Age: 58 Year
  Sex: Female

DRUGS (4)
  1. BYETTA [Suspect]
     Indication: TYPE 2 DIABETES MELLITUS
     Dosage: 5 UG, 2/D, ORAL ; 10 UG, 2/D, ORAL
     Route: 048
     Dates: start: 20060728, end: 20060827
  2. BYETTA [Suspect]
     Indication: TYPE 2 DIABETES MELLITUS
     Dosage: 5 UG, 2/D, ORAL ; 10 UG, 2/D, ORAL
     Route: 048
     Dates: start: 20060828
  3. BYETTA [Suspect]
  4. METFORMIN HCL [Concomitant]

REACTIONS (2)
  - DEVICE BREAKAGE [None]
  - FALL [None]
